FAERS Safety Report 5725108-X (Version None)
Quarter: 2008Q2

REPORT INFORMATION
  Report Type: 
  Country: None (occurrence: None)
  Receive Date: 20080501
  Receipt Date: 20080422
  Transmission Date: 20081010
  Serious: Yes (Other)
  Sender: FDA-Public Use
  Company Number: US-BAYER-200820786NA

PATIENT
  Age: 50 Year
  Sex: Female
  Weight: 79 kg

DRUGS (2)
  1. MAGNEVIST [Suspect]
     Indication: NUCLEAR MAGNETIC RESONANCE IMAGING
     Dosage: TOTAL DAILY DOSE: 18 ML
     Route: 042
     Dates: start: 20080415, end: 20080415
  2. NAPROSYN [Concomitant]
     Indication: BURSITIS
     Dates: end: 20080401

REACTIONS (2)
  - EYE HAEMORRHAGE [None]
  - EYE PAIN [None]
